FAERS Safety Report 24334195 (Version 4)
Quarter: 2024Q4

REPORT INFORMATION
  Report Type: Spontaneous
  Country: GB (occurrence: GB)
  Receive Date: 20240918
  Receipt Date: 20241028
  Transmission Date: 20250115
  Serious: Yes (Hospitalization)
  Sender: PHARMAESSENTIA
  Company Number: GB-PHARMAESSENTIA-GB-2024-PEC-004548

PATIENT
  Sex: Female

DRUGS (2)
  1. BESREMI [Suspect]
     Active Substance: ROPEGINTERFERON ALFA-2B-NJFT
     Indication: Essential thrombocythaemia
     Dosage: 100 MICROGRAM, EVERY 4 WEEKS
     Route: 058
     Dates: start: 20240302, end: 20240622
  2. BESREMI [Suspect]
     Active Substance: ROPEGINTERFERON ALFA-2B-NJFT
     Indication: Polycythaemia vera

REACTIONS (2)
  - Colitis [Recovered/Resolved]
  - Off label use [Unknown]
